FAERS Safety Report 5529406-4 (Version None)
Quarter: 2007Q4

REPORT INFORMATION
  Report Type: 
  Country: None (occurrence: None)
  Receive Date: 20071129
  Receipt Date: 20071121
  Transmission Date: 20080405
  Serious: Yes (Hospitalization)
  Sender: FDA-Public Use
  Company Number: FR-ASTRAZENECA-2007SE06290

PATIENT
  Age: 17696 Day
  Sex: Female

DRUGS (6)
  1. KENZEN 8 MG [Suspect]
     Indication: HYPERTENSION
     Route: 048
     Dates: end: 20070929
  2. EQUANIL [Concomitant]
     Indication: DRUG USE FOR UNKNOWN INDICATION
  3. AOTAL [Concomitant]
     Indication: DRUG USE FOR UNKNOWN INDICATION
  4. DEROXAT [Concomitant]
     Indication: DRUG USE FOR UNKNOWN INDICATION
  5. NEBILOX [Concomitant]
     Indication: DRUG USE FOR UNKNOWN INDICATION
  6. RABEPRAZOLE SODIUM [Concomitant]
     Indication: DRUG USE FOR UNKNOWN INDICATION

REACTIONS (2)
  - HYPONATRAEMIA [None]
  - MALAISE [None]
